FAERS Safety Report 24201292 (Version 3)
Quarter: 2025Q4

REPORT INFORMATION
  Report Type: Report from Study
  Country: EU (occurrence: EU)
  Receive Date: 20240812
  Receipt Date: 20251112
  Transmission Date: 20260118
  Serious: Yes (Other)
  Sender: NOVARTIS
  Company Number: EU-002147023-NVSC2024DE161390

PATIENT
  Sex: Female

DRUGS (13)
  1. BEOVU [Suspect]
     Active Substance: BROLUCIZUMAB-DBLL
     Indication: Neovascular age-related macular degeneration
     Dosage: 120 MG/ ML, 0.05 ML, ONCE/SINGLE, (= 6 MG BROLUCIZUMAB) (RIGHT EYE)
     Route: 031
     Dates: start: 20230628, end: 20230628
  2. BEOVU [Suspect]
     Active Substance: BROLUCIZUMAB-DBLL
     Dosage: 120 MG/ ML, 0.05 ML, ONCE/SINGLE, (= 6 MG BROLUCIZUMAB) (RIGHT EYE)
     Route: 031
     Dates: start: 20230726, end: 20230726
  3. BEOVU [Suspect]
     Active Substance: BROLUCIZUMAB-DBLL
     Dosage: 120 MG/ ML, 0.05 ML, ONCE/SINGLE, (= 6 MG BROLUCIZUMAB) (RIGHT EYE)
     Route: 031
     Dates: start: 20230830, end: 20230830
  4. BEOVU [Suspect]
     Active Substance: BROLUCIZUMAB-DBLL
     Dosage: 120 MG/ ML, 0.05 ML, ONCE/SINGLE, (= 6 MG BROLUCIZUMAB) (RIGHT EYE)
     Route: 031
     Dates: start: 20231025, end: 20231025
  5. BEOVU [Suspect]
     Active Substance: BROLUCIZUMAB-DBLL
     Dosage: 120 MG/ ML, 0.05 ML, ONCE/SINGLE, (= 6 MG BROLUCIZUMAB) (RIGHT EYE)
     Route: 031
     Dates: start: 20231227, end: 20231227
  6. BEOVU [Suspect]
     Active Substance: BROLUCIZUMAB-DBLL
     Dosage: 120 MG/ ML, 0.05 ML, ONCE/SINGLE, (= 6 MG BROLUCIZUMAB) (RIGHT EYE)
     Route: 031
     Dates: start: 20240221, end: 20240221
  7. BEOVU [Suspect]
     Active Substance: BROLUCIZUMAB-DBLL
     Dosage: 120 MG/ ML, 0.05 ML, ONCE/SINGLE, (= 6 MG BROLUCIZUMAB) (RIGHT EYE)
     Route: 031
     Dates: start: 20240417, end: 20240417
  8. BEOVU [Suspect]
     Active Substance: BROLUCIZUMAB-DBLL
     Dosage: 120 MG/ ML, 0.05 ML, ONCE/SINGLE, (= 6 MG BROLUCIZUMAB) (RIGHT EYE)
     Route: 031
     Dates: start: 20240626, end: 20240626
  9. BEOVU [Suspect]
     Active Substance: BROLUCIZUMAB-DBLL
     Dosage: 120 MG/ ML, 0.05 ML, ONCE/SINGLE, (= 6 MG BROLUCIZUMAB) (RIGHT EYE)
     Route: 031
     Dates: start: 20240918, end: 20240918
  10. BEOVU [Suspect]
     Active Substance: BROLUCIZUMAB-DBLL
     Dosage: 120 MG/ ML, 0.05 ML, ONCE/SINGLE, (= 6 MG BROLUCIZUMAB) (RIGHT EYE)
     Route: 031
     Dates: start: 20241127, end: 20241127
  11. BEOVU [Suspect]
     Active Substance: BROLUCIZUMAB-DBLL
     Dosage: 120 MG/ ML, 0.05 ML, ONCE/SINGLE, (= 6 MG BROLUCIZUMAB) (RIGHT EYE)
     Route: 031
     Dates: start: 20250205, end: 20250205
  12. BEOVU [Suspect]
     Active Substance: BROLUCIZUMAB-DBLL
     Dosage: 120 MG/ ML, 0.05 ML, ONCE/SINGLE, (= 6 MG BROLUCIZUMAB) (RIGHT EYE)
     Route: 031
     Dates: start: 20250416, end: 20250416
  13. BEOVU [Suspect]
     Active Substance: BROLUCIZUMAB-DBLL
     Dosage: 120 MG/ ML, 0.05 ML, ONCE/SINGLE, (= 6 MG BROLUCIZUMAB) (RIGHT EYE)
     Route: 031
     Dates: start: 20250709, end: 20250709

REACTIONS (2)
  - Intraocular pressure decreased [Recovering/Resolving]
  - Eye irritation [Recovered/Resolved]

NARRATIVE: CASE EVENT DATE: 20240620
